FAERS Safety Report 5952305-0 (Version None)
Quarter: 2008Q4

REPORT INFORMATION
  Report Type: 
  Country: None (occurrence: None)
  Receive Date: 20081113
  Receipt Date: 20081106
  Transmission Date: 20090506
  Serious: Yes (Other)
  Sender: FDA-Public Use
  Company Number: JP-PFIZER INC-2008094383

PATIENT
  Sex: Female

DRUGS (4)
  1. CARDENALIN [Suspect]
     Dosage: DAILY DOSE:1MG-FREQ:DAILY AFTER DINNER
     Route: 048
     Dates: start: 20081031
  2. AMLODIN [Concomitant]
  3. LUDIOMIL [Concomitant]
  4. ANTIDEPRESSANTS [Concomitant]

REACTIONS (4)
  - BLOOD PRESSURE INCREASED [None]
  - HEADACHE [None]
  - INSOMNIA [None]
  - PALPITATIONS [None]
